FAERS Safety Report 9479111 (Version 2)
Quarter: 2013Q4

REPORT INFORMATION
  Report Type: Spontaneous
  Country: FR (occurrence: FR)
  Receive Date: 20130827
  Receipt Date: 20131016
  Transmission Date: 20140711
  Serious: Yes (Hospitalization)
  Sender: FDA-Public Use
  Company Number: FR-GLAXOSMITHKLINE-B0916728A

PATIENT
  Age: 72 Year
  Sex: Female

DRUGS (5)
  1. DEROXAT [Suspect]
     Indication: MENTAL DISORDER
     Route: 048
     Dates: start: 20130725, end: 201308
  2. IXEL [Suspect]
     Indication: MENTAL DISORDER
     Dosage: 25MG PER DAY
     Route: 048
     Dates: start: 20130803, end: 20130803
  3. RISPERDAL [Concomitant]
     Dosage: 1MG PER DAY
     Route: 048
     Dates: end: 201308
  4. COOLMETEC [Concomitant]
     Indication: HYPERTENSION
     Dosage: 40MG PER DAY
     Route: 048
     Dates: end: 201308
  5. ATARAX [Concomitant]
     Route: 048
     Dates: start: 20130731, end: 20130803

REACTIONS (9)
  - Serotonin syndrome [Recovered/Resolved]
  - Palpitations [Recovered/Resolved]
  - Hyperhidrosis [Recovered/Resolved]
  - Tachycardia [Recovered/Resolved]
  - Hypertension [Recovered/Resolved]
  - Peripheral coldness [Recovered/Resolved]
  - Intentional drug misuse [Unknown]
  - Orthostatic hypotension [Unknown]
  - Hyponatraemia [Unknown]
